FAERS Safety Report 13192788 (Version 3)
Quarter: 2017Q3

REPORT INFORMATION
  Report Type: Report from Study
  Country: JP (occurrence: JP)
  Receive Date: 20170207
  Receipt Date: 20170911
  Transmission Date: 20171127
  Serious: Yes (Life-Threatening, Hospitalization)
  Sender: FDA-Public Use
  Company Number: JP-ACTELION-A-CH2015-124242

PATIENT
  Age: 18 Year
  Sex: Male

DRUGS (37)
  1. ADCIRCA [Concomitant]
     Active Substance: TADALAFIL
  2. VOLIBRIS [Concomitant]
     Active Substance: AMBRISENTAN
  3. SLOW-K [Concomitant]
     Active Substance: POTASSIUM CHLORIDE
  4. PREDNISOLONE. [Concomitant]
     Active Substance: PREDNISOLONE
     Dosage: 10 MG, UNK
     Dates: start: 20150727
  5. ALDACTONE A [Concomitant]
     Active Substance: SPIRONOLACTONE
  6. LEXOTAN [Concomitant]
     Active Substance: BROMAZEPAM
  7. THYROID GLAND [Concomitant]
  8. EPOPROSTENOL ACT [Suspect]
     Active Substance: EPOPROSTENOL
     Indication: PULMONARY ARTERIAL HYPERTENSION
     Dosage: UNK
     Route: 042
     Dates: start: 20140619, end: 20140807
  9. EPOPROSTENOL ACT [Suspect]
     Active Substance: EPOPROSTENOL
     Dosage: 76 NG/KG, PER MIN
     Route: 042
     Dates: start: 20140808
  10. EPOPROSTENOL ACT [Suspect]
     Active Substance: EPOPROSTENOL
     Dosage: 93 NG/KG, PER MIN
     Route: 042
     Dates: start: 20140919
  11. EPOPROSTENOL ACT [Suspect]
     Active Substance: EPOPROSTENOL
     Dosage: 162 NG/KG, PER MIN
     Route: 042
     Dates: start: 20150219
  12. REVATIO [Concomitant]
     Active Substance: SILDENAFIL CITRATE
  13. THYRADIN [Concomitant]
     Active Substance: LEVOTHYROXINE
  14. EPOPROSTENOL ACT [Suspect]
     Active Substance: EPOPROSTENOL
     Dosage: 147 NG/KG, PER MIN
     Route: 042
     Dates: start: 20150119
  15. EPOPROSTENOL ACT [Suspect]
     Active Substance: EPOPROSTENOL
     Dosage: 168 NG/KG, PER MIN
     Route: 042
     Dates: start: 20150719
  16. LOPEMIN [Concomitant]
     Active Substance: LOPERAMIDE HYDROCHLORIDE
  17. FERROMIA [Concomitant]
     Active Substance: FERROUS CITRATE
  18. JZOLOFT [Concomitant]
     Active Substance: SERTRALINE HYDROCHLORIDE
  19. EPOPROSTENOL ACT [Suspect]
     Active Substance: EPOPROSTENOL
     Dosage: 109 NG/KG, PER MIN
     Route: 042
     Dates: start: 20141019
  20. EPOPROSTENOL ACT [Suspect]
     Active Substance: EPOPROSTENOL
     Dosage: 121 NG/KG, PER MIN
     Route: 042
     Dates: start: 20141113
  21. NEXIUM [Concomitant]
     Active Substance: ESOMEPRAZOLE MAGNESIUM
  22. PREDNISOLONE. [Concomitant]
     Active Substance: PREDNISOLONE
     Dosage: 20 MG, UNK
  23. SAMSCA [Concomitant]
     Active Substance: TOLVAPTAN
  24. EPOPROSTENOL ACT [Suspect]
     Active Substance: EPOPROSTENOL
     Dosage: 135 NG/KG, PER MIN
     Route: 042
     Dates: start: 20141219
  25. PHELLOBERIN [Concomitant]
     Active Substance: BERBERINE\GERANIUM
  26. NEXAVAR [Concomitant]
     Active Substance: SORAFENIB
  27. BISONO [Concomitant]
     Active Substance: BISOPROLOL
  28. EPOPROSTENOL ACT [Suspect]
     Active Substance: EPOPROSTENOL
     Dosage: 123 NG/KG, PER MIN
     Route: 042
     Dates: start: 20141119
  29. EPOPROSTENOL ACT [Suspect]
     Active Substance: EPOPROSTENOL
     Dosage: 144 NG/KG, PER MIN
     Route: 042
     Dates: start: 20150107
  30. EPOPROSTENOL ACT [Suspect]
     Active Substance: EPOPROSTENOL
     Dosage: UNK
     Route: 042
     Dates: start: 20150615
  31. LASIX [Concomitant]
     Active Substance: FUROSEMIDE
  32. LAC-B [Concomitant]
     Active Substance: BIFIDOBACTERIUM SPP.
  33. WYPAX [Concomitant]
     Active Substance: LORAZEPAM
  34. OPSUMIT [Concomitant]
  35. LENDORMIN [Concomitant]
     Active Substance: BROTIZOLAM
  36. PREDNISOLONE. [Concomitant]
     Active Substance: PREDNISOLONE
     Dosage: 5 MG, UNK
     Dates: start: 20150727
  37. OXYGEN. [Concomitant]
     Active Substance: OXYGEN

REACTIONS (14)
  - Cardiac failure [Recovering/Resolving]
  - Anaemia [Recovering/Resolving]
  - Product deposit [Recovered/Resolved]
  - Thyroiditis [Recovering/Resolving]
  - Goitre [Recovering/Resolving]
  - Concomitant disease aggravated [Unknown]
  - Myocarditis [Recovered/Resolved]
  - Device occlusion [Recovered/Resolved]
  - Ascites [Recovering/Resolving]
  - Right ventricular failure [Recovering/Resolving]
  - Oropharyngeal discomfort [Recovering/Resolving]
  - Thyrotoxic crisis [Recovering/Resolving]
  - Transfusion [Recovered/Resolved]
  - Device related infection [Recovering/Resolving]

NARRATIVE: CASE EVENT DATE: 20140808
